FAERS Safety Report 7247654-2 (Version None)
Quarter: 2011Q1

REPORT INFORMATION
  Report Type: 
  Country: None (occurrence: None)
  Receive Date: 20110127
  Receipt Date: 20101214
  Transmission Date: 20110831
  Serious: Yes (Death, Other)
  Sender: FDA-Public Use
  Company Number: US-BAXTER-2009BH001161

PATIENT
  Age: 54 Year
  Sex: Male
  Weight: 173 kg

DRUGS (30)
  1. PANTOPRAZOLE [Concomitant]
     Indication: PRODUCT USED FOR UNKNOWN INDICATION
     Route: 065
     Dates: end: 20080124
  2. LASIX [Concomitant]
     Indication: PRODUCT USED FOR UNKNOWN INDICATION
     Route: 065
     Dates: end: 20080124
  3. WARFARIN [Concomitant]
     Indication: PRODUCT USED FOR UNKNOWN INDICATION
     Route: 065
  4. VANCOMYCIN [Concomitant]
     Indication: PRODUCT USED FOR UNKNOWN INDICATION
     Route: 042
  5. HEPARIN SODIUM INJECTION [Suspect]
     Indication: THROMBOSIS PROPHYLAXIS
     Route: 065
     Dates: start: 20070701
  6. AMITRIPTYLINE [Concomitant]
     Indication: PRODUCT USED FOR UNKNOWN INDICATION
     Route: 048
  7. COLACE [Concomitant]
     Indication: PRODUCT USED FOR UNKNOWN INDICATION
     Route: 065
     Dates: start: 20080105, end: 20080124
  8. SYMBICORT [Concomitant]
     Indication: PRODUCT USED FOR UNKNOWN INDICATION
     Route: 055
  9. CELEXA [Concomitant]
     Indication: PRODUCT USED FOR UNKNOWN INDICATION
     Route: 048
     Dates: start: 20080105, end: 20080124
  10. PLETAL [Concomitant]
     Route: 065
  11. HEPARIN SODIUM INJECTION [Suspect]
     Route: 010
     Dates: start: 20080123, end: 20080123
  12. HEPARIN SODIUM INJECTION [Suspect]
     Route: 040
     Dates: start: 20070723, end: 20080123
  13. ASMANEX TWISTHALER [Concomitant]
     Indication: PRODUCT USED FOR UNKNOWN INDICATION
     Route: 055
  14. HUMULIN 70/30 [Concomitant]
     Indication: PRODUCT USED FOR UNKNOWN INDICATION
     Route: 058
     Dates: start: 20080105, end: 20080124
  15. GLIPIZIDE [Concomitant]
     Indication: PRODUCT USED FOR UNKNOWN INDICATION
     Route: 048
     Dates: end: 20080124
  16. ULTRAM [Concomitant]
     Indication: PRODUCT USED FOR UNKNOWN INDICATION
     Route: 048
     Dates: start: 20080105, end: 20080124
  17. SIMVASTATIN [Concomitant]
     Indication: PRODUCT USED FOR UNKNOWN INDICATION
     Route: 065
     Dates: start: 20080105, end: 20080124
  18. ASA [Concomitant]
     Indication: PRODUCT USED FOR UNKNOWN INDICATION
     Route: 048
     Dates: start: 20080105, end: 20080124
  19. SYNTHROID [Concomitant]
     Indication: PRODUCT USED FOR UNKNOWN INDICATION
     Route: 065
     Dates: end: 20080124
  20. LORTAB [Concomitant]
     Indication: PRODUCT USED FOR UNKNOWN INDICATION
     Route: 065
  21. LORTAB [Concomitant]
     Route: 065
  22. VYTORIN [Concomitant]
     Indication: PRODUCT USED FOR UNKNOWN INDICATION
     Route: 065
  23. COREG [Concomitant]
     Indication: PRODUCT USED FOR UNKNOWN INDICATION
     Route: 065
  24. TRICOR [Concomitant]
     Indication: PRODUCT USED FOR UNKNOWN INDICATION
     Route: 048
     Dates: end: 20080124
  25. XANAX [Concomitant]
     Indication: PRODUCT USED FOR UNKNOWN INDICATION
     Route: 065
     Dates: start: 20080124
  26. HEPARIN SODIUM INJECTION [Suspect]
     Route: 010
     Dates: start: 20071101, end: 20080101
  27. ALBUTEROL SULFATE [Concomitant]
     Indication: PRODUCT USED FOR UNKNOWN INDICATION
     Route: 055
  28. PLETAL [Concomitant]
     Indication: PRODUCT USED FOR UNKNOWN INDICATION
     Route: 065
     Dates: start: 20080105, end: 20080124
  29. HUMULIN 70/30 [Concomitant]
     Route: 065
  30. SOMA [Concomitant]
     Indication: PRODUCT USED FOR UNKNOWN INDICATION
     Route: 065

REACTIONS (38)
  - IMPAIRED HEALING [None]
  - FLUSHING [None]
  - CHEST PAIN [None]
  - WOUND INFECTION PSEUDOMONAS [None]
  - DIZZINESS [None]
  - RESTLESSNESS [None]
  - LIP SWELLING [None]
  - WOUND INFECTION STAPHYLOCOCCAL [None]
  - ABDOMINAL PAIN UPPER [None]
  - NAUSEA [None]
  - PRURITUS [None]
  - CARDIAC ARREST [None]
  - SEPSIS [None]
  - LOCAL SWELLING [None]
  - LEUKOCYTOSIS [None]
  - HAEMORRHOIDS [None]
  - ABDOMINAL DISCOMFORT [None]
  - VOMITING [None]
  - OEDEMA MOUTH [None]
  - CHILLS [None]
  - ABDOMINAL PAIN [None]
  - OXYGEN SATURATION DECREASED [None]
  - SIALOADENITIS [None]
  - PYREXIA [None]
  - PARAESTHESIA [None]
  - PHARYNGEAL OEDEMA [None]
  - DYSPNOEA [None]
  - DEPRESSION [None]
  - ACUTE SINUSITIS [None]
  - BURNING SENSATION [None]
  - LETHARGY [None]
  - THIRST [None]
  - ORGAN FAILURE [None]
  - PASTEURELLA INFECTION [None]
  - PAIN IN EXTREMITY [None]
  - HYPOTENSION [None]
  - DIARRHOEA [None]
  - HEADACHE [None]
